FAERS Safety Report 9791337 (Version 1)
Quarter: 2014Q1

REPORT INFORMATION
  Report Type: Spontaneous
  Country: IT (occurrence: IT)
  Receive Date: 20140101
  Receipt Date: 20140101
  Transmission Date: 20141002
  Serious: Yes (Hospitalization)
  Sender: FDA-Public Use
  Company Number: IT-ASTRAZENECA-2013SE93498

PATIENT
  Age: 21920 Day
  Sex: Male

DRUGS (6)
  1. BRILIQUE [Suspect]
     Indication: CORONARY ANGIOPLASTY
     Route: 048
     Dates: start: 20131029, end: 20131207
  2. CRESTOR [Concomitant]
     Indication: HYPERCHOLESTEROLAEMIA
     Route: 048
  3. NITRODERM TTS [Concomitant]
     Route: 062
  4. CARDIOASPIRIN [Concomitant]
  5. PEPTAZOL [Concomitant]
  6. GLIBOMET [Concomitant]
     Dosage: 400MG+5MG

REACTIONS (5)
  - Aphasia [Recovering/Resolving]
  - Balance disorder [Recovering/Resolving]
  - Dizziness [Recovering/Resolving]
  - Presyncope [Recovering/Resolving]
  - Vertigo [Recovering/Resolving]
